FAERS Safety Report 16710132 (Version 1)
Quarter: 2019Q3

REPORT INFORMATION
  Report Type: Spontaneous
  Country: US (occurrence: US)
  Receive Date: 20190816
  Receipt Date: 20190816
  Transmission Date: 20191004
  Serious: Yes (Hospitalization)
  Sender: FDA-Public Use
  Company Number: US-GLAXOSMITHKLINE-US2019AMR146570

PATIENT
  Age: 54 Year
  Sex: Female

DRUGS (6)
  1. CARBIDOPA AND LEVODOPA [Suspect]
     Active Substance: CARBIDOPA\LEVODOPA
     Indication: PARKINSON^S DISEASE
     Dosage: 4/5 TABLETS EVERY 3 TO 4 HOURS
     Route: 048
  2. PROVIGIL [Suspect]
     Active Substance: MODAFINIL
     Indication: POOR QUALITY SLEEP
     Dosage: UNK
     Route: 065
  3. APOKYN [Suspect]
     Active Substance: APOMORPHINE HYDROCHLORIDE
     Indication: PARKINSON^S DISEASE
     Dosage: 0.2 ML, PRN
     Route: 058
     Dates: start: 20190206
  4. APOKYN [Suspect]
     Active Substance: APOMORPHINE HYDROCHLORIDE
     Dosage: 0.25 ML, PRN, 3-4 TIMES A DAY
  5. REQUIP [Suspect]
     Active Substance: ROPINIROLE HYDROCHLORIDE
     Indication: PARKINSON^S DISEASE
     Dosage: UNK, 1D, AT NIGHT
     Route: 065
  6. REQUIP [Suspect]
     Active Substance: ROPINIROLE HYDROCHLORIDE
     Dosage: 16 MG, UNK
     Route: 065

REACTIONS (5)
  - Road traffic accident [Unknown]
  - Somnolence [Unknown]
  - Visual impairment [Unknown]
  - Injury [Recovering/Resolving]
  - Product dose omission [Unknown]

NARRATIVE: CASE EVENT DATE: 20190615
